FAERS Safety Report 11882342 (Version 1)
Quarter: 2015Q4

REPORT INFORMATION
  Report Type: Spontaneous
  Country: FR (occurrence: FR)
  Receive Date: 20151231
  Receipt Date: 20151231
  Transmission Date: 20160305
  Serious: Yes (Hospitalization)
  Sender: FDA-Public Use
  Company Number: FR-ASTRAZENECA-2015SF30651

PATIENT
  Age: 74 Year
  Sex: Male

DRUGS (8)
  1. CRESTOR [Concomitant]
     Active Substance: ROSUVASTATIN CALCIUM
  2. KARDEGIC [Suspect]
     Active Substance: ASPIRIN LYSINE
     Indication: PLATELET AGGREGATION INHIBITION
     Route: 048
  3. ZYLORIC [Concomitant]
     Active Substance: ALLOPURINOL
  4. ATACAND [Concomitant]
     Active Substance: CANDESARTAN CILEXETIL
  5. XATRAL [Concomitant]
     Active Substance: ALFUZOSIN
  6. BRILIQUE [Suspect]
     Active Substance: TICAGRELOR
     Indication: PLATELET AGGREGATION INHIBITION
     Route: 048
     Dates: end: 20151130
  7. ADANCOR [Concomitant]
     Active Substance: NICORANDIL
  8. TEMERITDUO [Concomitant]
     Active Substance: HYDROCHLOROTHIAZIDE\NEBIVOLOL HYDROCHLORIDE

REACTIONS (2)
  - Cerebellar infarction [Not Recovered/Not Resolved]
  - Ischaemic stroke [Unknown]

NARRATIVE: CASE EVENT DATE: 20151130
